FAERS Safety Report 5899826-7 (Version None)
Quarter: 2008Q3

REPORT INFORMATION
  Report Type: 
  Country: None (occurrence: None)
  Receive Date: 20080926
  Receipt Date: 20080917
  Transmission Date: 20090109
  Serious: Yes (Hospitalization, Congenital Anomaly)
  Sender: FDA-Public Use
  Company Number: FR-AVENTIS-200813375FR

PATIENT
  Age: 23 Week

DRUGS (6)
  1. CORTANCYL [Suspect]
     Route: 064
  2. PLAQUENIL                          /00072601/ [Suspect]
     Route: 064
  3. RIFADIN [Suspect]
     Route: 064
     Dates: end: 20080601
  4. DICLOFENAC [Suspect]
     Route: 064
     Dates: end: 20080616
  5. ETHAMBUTOL HCL [Suspect]
     Route: 064
     Dates: end: 20080601
  6. RIFINAH [Concomitant]
     Route: 048
     Dates: start: 20080601

REACTIONS (3)
  - DRUG EXPOSURE DURING PREGNANCY [None]
  - MICROGNATHIA [None]
  - VENTRICULAR SEPTAL DEFECT [None]
